FAERS Safety Report 19359631 (Version 2)
Quarter: 2021Q2

REPORT INFORMATION
  Report Type: Spontaneous
  Country: US (occurrence: US)
  Receive Date: 20210601
  Receipt Date: 20210614
  Transmission Date: 20210717
  Serious: No
  Sender: FDA-Public Use
  Company Number: US-GILEAD-2021-0533508

PATIENT
  Sex: Female

DRUGS (1)
  1. VOSEVI [Suspect]
     Active Substance: SOFOSBUVIR\VELPATASVIR\VOXILAPREVIR
     Indication: CHRONIC HEPATITIS C
     Dosage: TAKE 1 TABLET BY MOUTH DAILY WITH FOOD.
     Route: 048
     Dates: start: 202104

REACTIONS (4)
  - Heavy menstrual bleeding [Not Recovered/Not Resolved]
  - Vaginal haemorrhage [Not Recovered/Not Resolved]
  - Polymenorrhoea [Not Recovered/Not Resolved]
  - Genito-pelvic pain/penetration disorder [Not Recovered/Not Resolved]
